FAERS Safety Report 4506064-9 (Version None)
Quarter: 2004Q4

REPORT INFORMATION
  Report Type: 
  Country: None (occurrence: None)
  Receive Date: 20041025
  Receipt Date: 20040803
  Transmission Date: 20050328
  Serious: Yes (Hospitalization)
  Sender: FDA-Public Use
  Company Number: US-JNJFOC-20040501972

PATIENT
  Age: 42 Year
  Sex: Male
  Weight: 96 kg

DRUGS (4)
  1. REMICADE [Suspect]
     Indication: CROHN'S DISEASE
     Dosage: 15 MG/KG, INTRAVENOUS
     Route: 042
     Dates: start: 20040506
  2. ACETYLSALICYLIC ACID SRT [Concomitant]
  3. AZATHIOPRINE [Concomitant]
  4. PREDNISONE [Concomitant]

REACTIONS (4)
  - ABASIA [None]
  - ABDOMINAL PAIN [None]
  - CROHN'S DISEASE [None]
  - PERIRECTAL ABSCESS [None]
